FAERS Safety Report 6640088-0 (Version None)
Quarter: 2010Q1

REPORT INFORMATION
  Report Type: 
  Country: None (occurrence: None)
  Receive Date: 20100315
  Receipt Date: 20100308
  Transmission Date: 20100710
  Serious: Yes (Hospitalization, Other)
  Sender: FDA-Public Use
  Company Number: SPV1-2009-02592

PATIENT
  Age: 46 Year
  Sex: Male

DRUGS (7)
  1. FOSRENOL [Suspect]
     Indication: HYPERPHOSPHATAEMIA
     Dosage: ORAL ; ORAL
     Route: 048
     Dates: start: 20090714, end: 20090929
  2. FOSRENOL [Suspect]
     Indication: HYPERPHOSPHATAEMIA
     Dosage: ORAL ; ORAL
     Route: 048
     Dates: start: 20091215
  3. CALCIUM CARBONATE [Concomitant]
  4. RENAGEL [Concomitant]
  5. TICLOPIDINE HCL [Concomitant]
  6. LANSOPRAZOLE [Concomitant]
  7. PROMAC /00024401/ (NITROFURANTOIN) [Concomitant]

REACTIONS (3)
  - CONSTIPATION [None]
  - DIVERTICULAR PERFORATION [None]
  - PERITONITIS [None]
